FAERS Safety Report 7134237-8 (Version None)
Quarter: 2010Q4

REPORT INFORMATION
  Report Type: 
  Country: None (occurrence: None)
  Receive Date: 20101203
  Receipt Date: 20101124
  Transmission Date: 20110411
  Serious: Yes (Death, Life-Threatening, Hospitalization)
  Sender: FDA-Public Use
  Company Number: TH-NOVOPROD-317817

PATIENT
  Age: 8 Year
  Sex: Male
  Weight: 16 kg

DRUGS (20)
  1. NOVOSEVEN [Suspect]
     Indication: FACTOR VII DEFICIENCY
     Dosage: 400 IU, TID
     Dates: start: 20100615, end: 20100615
  2. NOVOSEVEN [Suspect]
     Dosage: 400 IU, QID
     Dates: start: 20100616, end: 20100616
  3. NOVOSEVEN [Suspect]
     Dosage: 300 IU, QID
     Dates: start: 20100617, end: 20100619
  4. NOVOSEVEN [Suspect]
     Dosage: 200 IU, QID
     Dates: start: 20100620, end: 20100620
  5. NOVOSEVEN [Suspect]
     Dosage: 200 IU, BID
     Dates: start: 20100621, end: 20100621
  6. FRESH FROZEN PLASMA [Concomitant]
     Dosage: 10 ML/KG.
     Dates: start: 20100617
  7. DILANTIN [Concomitant]
     Dosage: 250 MG, QD
     Route: 042
     Dates: start: 20100615, end: 20100617
  8. DEXAMETHASONE [Concomitant]
     Dosage: 3.5 MG, TID
     Dates: start: 20100615, end: 20100621
  9. CEFAZOLIN [Concomitant]
     Dosage: 570 MG, TID
     Route: 042
     Dates: start: 20100616, end: 20100618
  10. FERROUS SULFATE [Concomitant]
     Dosage: UNK
     Dates: start: 20100615, end: 20100616
  11. PARACETAMOL [Concomitant]
     Dosage: UNK
     Dates: start: 20100615, end: 20100621
  12. FUROSEMIDE [Concomitant]
     Dosage: UNK
     Dates: start: 20100615, end: 20100628
  13. MIDAZOLAM HCL [Concomitant]
     Dosage: UNK
     Dates: start: 20100615, end: 20100615
  14. MIDAZOLAM HCL [Concomitant]
     Dosage: UNK
     Dates: start: 20100623, end: 20100623
  15. DIAZEPAM [Concomitant]
     Dosage: UNK
     Dates: start: 20100615, end: 20100615
  16. OMEPRAZOLE [Concomitant]
     Dosage: UNK
     Dates: start: 20100615, end: 20100620
  17. PHENYTOIN [Concomitant]
     Dosage: UNK
     Dates: start: 20100615, end: 20100621
  18. CHLORAL HYDRATE [Suspect]
     Dosage: UNK
     Dates: start: 20100615, end: 20100615
  19. FENTANYL CITRATE [Concomitant]
     Dosage: UNK
     Dates: start: 20100616, end: 20100616
  20. MORPHINE [Concomitant]
     Dosage: UNK
     Dates: start: 20100616, end: 20100617

REACTIONS (2)
  - CEREBRAL INFARCTION [None]
  - GASTROINTESTINAL HAEMORRHAGE [None]
